FAERS Safety Report 17188490 (Version 1)
Quarter: 2019Q4

REPORT INFORMATION
  Report Type: Report from Study
  Country: BE (occurrence: BE)
  Receive Date: 20191222
  Receipt Date: 20191222
  Transmission Date: 20200122
  Serious: Yes (Hospitalization)
  Sender: FDA-Public Use
  Company Number: BE-BEH-2019110862

PATIENT
  Age: 6 Year
  Sex: Male

DRUGS (1)
  1. HIZENTRA [Suspect]
     Active Substance: HUMAN IMMUNOGLOBULIN G
     Dosage: 3 GRAM
     Route: 058

REACTIONS (4)
  - Hypoglycaemia [Recovering/Resolving]
  - Gastrointestinal infection [Recovering/Resolving]
  - Epilepsy [Recovering/Resolving]
  - Gastroenteritis [Recovering/Resolving]
